FAERS Safety Report 17646931 (Version 1)
Quarter: 2020Q2

REPORT INFORMATION
  Report Type: Spontaneous
  Country: DE (occurrence: DE)
  Receive Date: 20200408
  Receipt Date: 20200408
  Transmission Date: 20200713
  Serious: Yes (Other)
  Sender: FDA-Public Use
  Company Number: DE-PFIZER INC-2020140780

PATIENT
  Sex: Male

DRUGS (1)
  1. CYTOTEC [Suspect]
     Active Substance: MISOPROSTOL
     Indication: LABOUR INDUCTION
     Dosage: UNK
     Route: 064
     Dates: start: 20160704, end: 20160704

REACTIONS (7)
  - Apgar score abnormal [Unknown]
  - Adjustment disorder [Unknown]
  - Foetal exposure during delivery [Unknown]
  - Foetal heart rate decreased [Unknown]
  - Musculoskeletal pain [Unknown]
  - Speech disorder [Unknown]
  - Spinal disorder [Unknown]

NARRATIVE: CASE EVENT DATE: 20160704
